FAERS Safety Report 6558984-1 (Version None)
Quarter: 2010Q1

REPORT INFORMATION
  Report Type: 
  Country: None (occurrence: None)
  Receive Date: 20100129
  Receipt Date: 20100121
  Transmission Date: 20100710
  Serious: No
  Sender: FDA-Public Use
  Company Number: IE-WYE-G04774009

PATIENT
  Sex: Female

DRUGS (9)
  1. VENLAFAXINE HCL [Suspect]
     Indication: DEPRESSION
     Dosage: DOSAGE UNSPECIFIED, FOR MANY YEARS
     Route: 048
     Dates: end: 20090401
  2. VENLAFAXINE HCL [Suspect]
     Route: 048
     Dates: start: 20090401
  3. VENLAFAXINE HCL [Suspect]
     Route: 048
     Dates: start: 20091001
  4. TOPAMAX [Concomitant]
     Indication: MIGRAINE
     Route: 048
  5. ALLEGRO [Concomitant]
     Indication: MIGRAINE
     Dosage: 2.5MG ON P.R.N BASIS
  6. FOLIC ACID [Concomitant]
     Route: 048
  7. NEXIUM [Concomitant]
     Indication: GASTRITIS
     Route: 048
  8. AMITRIPTYLINE HCL [Concomitant]
     Indication: PAIN
     Dosage: 25MG AT NIGHT
     Route: 048
  9. METFORMIN HCL [Concomitant]
     Indication: POLYCYSTIC OVARIES
     Route: 048

REACTIONS (3)
  - DRUG EFFECT DECREASED [None]
  - MALABSORPTION [None]
  - UVEITIS [None]
